FAERS Safety Report 17218894 (Version 1)
Quarter: 2019Q4

REPORT INFORMATION
  Report Type: Spontaneous
  Country: CH (occurrence: CH)
  Receive Date: 20191231
  Receipt Date: 20191231
  Transmission Date: 20200122
  Serious: Yes (Other)
  Sender: FDA-Public Use
  Company Number: CH-AMERICAN REGENT INC-2019002884

PATIENT
  Age: 30 Year
  Sex: Female

DRUGS (2)
  1. MALTOFER                           /00023548/ [Suspect]
     Active Substance: IRON POLYMALTOSE
     Indication: PRODUCT USED FOR UNKNOWN INDICATION
     Dosage: 500 MILLIGRAM, BID
     Route: 048
  2. FERINJECT [Suspect]
     Active Substance: FERRIC CARBOXYMALTOSE
     Indication: SERUM FERRITIN DECREASED
     Dosage: 500 MILLIGRAM, SINGLE
     Dates: start: 20191129, end: 20191129

REACTIONS (2)
  - Anaphylactoid reaction [Recovered/Resolved]
  - Maternal exposure during pregnancy [Unknown]

NARRATIVE: CASE EVENT DATE: 20191129
